FAERS Safety Report 6697714-X (Version None)
Quarter: 2010Q2

REPORT INFORMATION
  Report Type: 
  Country: None (occurrence: None)
  Receive Date: 20100423
  Receipt Date: 20100414
  Transmission Date: 20101027
  Serious: Yes (Other)
  Sender: FDA-Public Use
  Company Number: 20108617

PATIENT
  Age: 10 Year
  Sex: Female

DRUGS (1)
  1. LIORESAL [Suspect]
     Indication: MUSCLE SPASTICITY
     Dosage: 147 MCG, DAILY, INTRATHECAL
     Route: 037

REACTIONS (2)
  - INCISION SITE COMPLICATION [None]
  - MUSCLE SPASMS [None]
